FAERS Safety Report 8602418 (Version 3)
Quarter: 2014Q1

REPORT INFORMATION
  Report Type: Spontaneous
  Country: US (occurrence: US)
  Receive Date: 20120607
  Receipt Date: 20140108
  Transmission Date: 20141002
  Serious: Yes (Other)
  Sender: FDA-Public Use
  Company Number: US-ASTRAZENECA-2012SE34732

PATIENT
  Age: 49 Year
  Sex: Male
  Weight: 70.8 kg

DRUGS (9)
  1. NEXIUM [Suspect]
     Dosage: 10 TO 30 MG ONCE A DAY
     Route: 048
     Dates: start: 1994, end: 2007
  2. NEXIUM [Suspect]
     Route: 048
     Dates: start: 20020202
  3. NIFEDIAC CC [Concomitant]
     Dates: start: 20001105
  4. CEPHALEXIN [Concomitant]
     Dates: start: 20011124
  5. HYDROCODONE APAP [Concomitant]
     Dosage: 7.5-650 MG
     Dates: start: 20011124
  6. SKELAXIN [Concomitant]
     Dates: start: 20020603
  7. PHENAZOPYRIDINE [Concomitant]
     Dates: start: 20020603
  8. PRAVACHOL [Concomitant]
  9. ULTRACET [Concomitant]
     Dates: start: 20020709

REACTIONS (14)
  - Spinal fracture [Unknown]
  - Injury [Unknown]
  - Femur fracture [Unknown]
  - Patella fracture [Unknown]
  - Osteoporosis [Unknown]
  - Diabetes mellitus [Unknown]
  - Ankle fracture [Unknown]
  - Foot fracture [Unknown]
  - Bone disorder [Unknown]
  - Rheumatoid arthritis [Unknown]
  - Intervertebral disc degeneration [Unknown]
  - Limb injury [Unknown]
  - Joint injury [Unknown]
  - Depression [Unknown]
